FAERS Safety Report 10286913 (Version 1)
Quarter: 2014Q3

REPORT INFORMATION
  Report Type: Spontaneous
  Country: US (occurrence: None)
  Receive Date: 20140707
  Receipt Date: 20140707
  Transmission Date: 20150326
  Serious: Yes (Disabling, Other)
  Sender: FDA-Public Use
  Company Number: 2014-US-008071

PATIENT
  Age: 56 Year
  Sex: Female

DRUGS (1)
  1. XYREM [Suspect]
     Active Substance: SODIUM OXYBATE
     Indication: NARCOLEPSY
     Route: 048
     Dates: start: 201304, end: 2013

REACTIONS (5)
  - Gastrooesophageal reflux disease [None]
  - Disability [None]
  - Thyroiditis [None]
  - Back pain [None]
  - Sleep apnoea syndrome [None]
